FAERS Safety Report 5013868-5 (Version None)
Quarter: 2006Q2

REPORT INFORMATION
  Report Type: 
  Country: None (occurrence: None)
  Receive Date: 20060525
  Receipt Date: 20060512
  Transmission Date: 20061013
  Serious: Yes (Hospitalization)
  Sender: FDA-Public Use
  Company Number: 2006064046

PATIENT
  Age: 12 Year
  Sex: Female

DRUGS (4)
  1. AZITHROMYCIN [Suspect]
     Indication: COUGH
     Dosage: 500 MG, ORAL
     Route: 048
     Dates: start: 20060506, end: 20060508
  2. AZITHROMYCIN [Suspect]
     Indication: PYREXIA
     Dosage: 500 MG, ORAL
     Route: 048
     Dates: start: 20060506, end: 20060508
  3. MEDICON (DEXTROMETHORPHAN HYDROBROMIDE) [Concomitant]
  4. MUCOSOLVAN (AMBROXOL HYDROCHLORIDE) [Concomitant]

REACTIONS (2)
  - DYSPNOEA [None]
  - URTICARIA [None]
